FAERS Safety Report 9134887 (Version 2)
Quarter: 2013Q2

REPORT INFORMATION
  Report Type: Spontaneous
  Country: US (occurrence: US)
  Receive Date: 20130304
  Receipt Date: 20130404
  Transmission Date: 20140414
  Serious: No
  Sender: FDA-Public Use
  Company Number: US-PFIZER INC-2013070821

PATIENT
  Age: 59 Year
  Sex: Male

DRUGS (19)
  1. NEURONTIN [Suspect]
     Dosage: 100 MG, 2X/DAY
     Route: 048
  2. NEURONTIN [Suspect]
     Dosage: 600 MG, 4X/DAY
     Route: 048
  3. PERCOCET [Concomitant]
     Dosage: 10/325 MG UP TO 4 TIMES DAILY
  4. METHYLPREDNISOLONE [Concomitant]
     Dosage: 6 MG, UNK
  5. FOLIC ACID [Concomitant]
     Dosage: 2MG ONCE A DAY
  6. ASPIRIN [Concomitant]
     Dosage: 81 MG, 1X/DAY
  7. ADVIL [Concomitant]
     Dosage: 200 MG, AS NEEDED (2 TABS)
  8. AMBIEN [Concomitant]
     Dosage: 5 MG AT NIGHT, DAILY
  9. VITAMIN D3 [Concomitant]
     Dosage: 1000 UNIT, 2X/DAY
  10. CYMBALTA [Concomitant]
     Dosage: 90 MG DAILY
  11. CYMBALTA [Concomitant]
     Dosage: 30MG DAILY
     Route: 048
  12. NIASPAN [Concomitant]
     Indication: HYPERLIPIDAEMIA
     Dosage: 500 MG DAILY
  13. CRESTOR [Concomitant]
     Dosage: 10 MG, UNK
  14. METHOTREXATE SODIUM [Concomitant]
     Dosage: 25 MG/ML (PF), 0.8CC (10MG) WEEKLY
     Route: 058
  15. METHOTREXATE [Concomitant]
     Dosage: 20 MG, WEEKLY
  16. LEFLUNOMIDE [Concomitant]
     Dosage: 20 MG, 1X/DAY
     Route: 048
  17. PREDNISONE [Concomitant]
     Dosage: 5 MG, 1X/DAY (ONE)
     Route: 048
  18. TOCILIZUMAB [Concomitant]
     Dosage: 4 MG/KG, UNK
     Dates: start: 20121022
  19. TOCILIZUMAB [Concomitant]
     Dosage: 8 MG/KG, UNK

REACTIONS (6)
  - Local swelling [Unknown]
  - Pain in extremity [Unknown]
  - Musculoskeletal pain [Unknown]
  - Spinal pain [Unknown]
  - Asthenia [Unknown]
  - Pain [Unknown]
